FAERS Safety Report 13982894 (Version 1)
Quarter: 2017Q3

REPORT INFORMATION
  Report Type: Spontaneous
  Country: CH (occurrence: CH)
  Receive Date: 20170918
  Receipt Date: 20170918
  Transmission Date: 20171128
  Serious: Yes (Other)
  Sender: FDA-Public Use
  Company Number: CH-GLAXOSMITHKLINE-CH2017GSK143217

PATIENT
  Sex: Female

DRUGS (6)
  1. NUCALA [Suspect]
     Active Substance: MEPOLIZUMAB
     Dosage: 100 MG, UNK
     Route: 058
     Dates: start: 20161103
  2. NUCALA [Suspect]
     Active Substance: MEPOLIZUMAB
     Dosage: 100 MG, UNK
     Route: 058
     Dates: start: 20170419
  3. NUCALA [Suspect]
     Active Substance: MEPOLIZUMAB
     Dosage: 100 UNK, UNK
     Route: 058
     Dates: start: 20170223
  4. NUCALA [Suspect]
     Active Substance: MEPOLIZUMAB
     Dosage: 100 MG, UNK
     Route: 058
     Dates: start: 20161212
  5. PREDNISON [Concomitant]
     Active Substance: PREDNISONE
     Indication: ASTHMA
     Dosage: 5 MG, UNK
  6. NUCALA [Suspect]
     Active Substance: MEPOLIZUMAB
     Indication: ASTHMA
     Dosage: 100 MG, UNK
     Route: 058
     Dates: start: 20161004

REACTIONS (17)
  - Nausea [Unknown]
  - Dry throat [Unknown]
  - Hyperhidrosis [Unknown]
  - Vomiting [Not Recovered/Not Resolved]
  - Insomnia [Unknown]
  - Nightmare [Not Recovered/Not Resolved]
  - Back pain [Unknown]
  - Depression [Unknown]
  - Headache [Unknown]
  - Peritonsillar abscess [Unknown]
  - Musculoskeletal stiffness [Not Recovered/Not Resolved]
  - Weight increased [Unknown]
  - Fatigue [Unknown]
  - Dry mouth [Unknown]
  - Arthralgia [Unknown]
  - Musculoskeletal chest pain [Unknown]
  - Nasal obstruction [Unknown]

NARRATIVE: CASE EVENT DATE: 201610
